FAERS Safety Report 18727981 (Version 2)
Quarter: 2022Q2

REPORT INFORMATION
  Report Type: Spontaneous
  Country: IL (occurrence: IL)
  Receive Date: 20210111
  Receipt Date: 20220520
  Transmission Date: 20220721
  Serious: No
  Sender: FDA-Public Use
  Company Number: IL-ABBVIE-21K-082-3725226-00

PATIENT
  Sex: Female

DRUGS (1)
  1. ORILISSA [Suspect]
     Active Substance: ELAGOLIX SODIUM
     Indication: Endometriosis
     Dosage: 150 MG
     Route: 048
     Dates: end: 202205

REACTIONS (2)
  - Wound [Not Recovered/Not Resolved]
  - Hepatic function abnormal [Not Recovered/Not Resolved]
